FAERS Safety Report 8258369-6 (Version None)
Quarter: 2012Q1

REPORT INFORMATION
  Report Type: 
  Country: None (occurrence: None)
  Receive Date: 20120322
  Receipt Date: 20120127
  Transmission Date: 20120608
  Serious: Yes (Hospitalization)
  Sender: FDA-Public Use
  Company Number: UTC-015051

PATIENT
  Age: 30 Year
  Sex: Female
  Weight: 70.5 kg

DRUGS (3)
  1. TYVASO [Suspect]
     Indication: COR PULMONALE CHRONIC
     Dosage: 18-54 MICROGRAMS (4 IN 1 D), INHALATION
     Route: 055
     Dates: start: 20110420
  2. TRACLEER [Concomitant]
  3. ADCIRCA [Concomitant]

REACTIONS (3)
  - TREATMENT NONCOMPLIANCE [None]
  - BLOOD DISORDER [None]
  - SYSTEMIC LUPUS ERYTHEMATOSUS [None]
